FAERS Safety Report 4768840-7 (Version None)
Quarter: 2005Q3

REPORT INFORMATION
  Report Type: 
  Country: None (occurrence: None)
  Receive Date: 20050914
  Receipt Date: 20050905
  Transmission Date: 20060218
  Serious: Yes (Hospitalization)
  Sender: FDA-Public Use
  Company Number: GB-MERCK-0509GBR00037

PATIENT
  Age: 58 Year
  Sex: Male

DRUGS (6)
  1. ZOCOR [Suspect]
     Indication: HYPERCHOLESTEROLAEMIA
     Route: 048
  2. AMLODIPINE BESYLATE [Suspect]
     Indication: HYPERTENSION
     Route: 065
  3. BISOPROLOL [Concomitant]
     Indication: HYPERTENSION
     Route: 065
  4. SPIRONOLACTONE [Concomitant]
     Route: 065
  5. RAMIPRIL [Concomitant]
     Route: 065
  6. WARFARIN [Concomitant]
     Indication: MITRAL VALVE REPLACEMENT
     Route: 065

REACTIONS (10)
  - ASTHENIA [None]
  - BACK PAIN [None]
  - C-REACTIVE PROTEIN INCREASED [None]
  - DRUG INTERACTION [None]
  - EOSINOPHILIA [None]
  - GUILLAIN-BARRE SYNDROME [None]
  - HYPOAESTHESIA [None]
  - HYPONATRAEMIA [None]
  - RECTAL HAEMORRHAGE [None]
  - RENAL FAILURE [None]
